FAERS Safety Report 7967159-0 (Version None)
Quarter: 2011Q4

REPORT INFORMATION
  Report Type: 
  Country: None (occurrence: None)
  Receive Date: 20111206
  Receipt Date: 20111115
  Transmission Date: 20120403
  Serious: Yes (Hospitalization)
  Sender: FDA-Public Use
  Company Number: SE-DEXPHARM-20111759

PATIENT
  Age: 89 Year
  Sex: Female

DRUGS (2)
  1. ISOSORBIDE MONONITRATE [Suspect]
     Indication: ANGINA PECTORIS
  2. ATENOLOL [Suspect]
     Indication: ESSENTIAL HYPERTENSION

REACTIONS (3)
  - SYNCOPE [None]
  - DRUG INTERACTION [None]
  - ORTHOSTATIC HYPOTENSION [None]
